FAERS Safety Report 6929959-5 (Version None)
Quarter: 2010Q3

REPORT INFORMATION
  Report Type: 
  Country: None (occurrence: None)
  Receive Date: 20100818
  Receipt Date: 20100811
  Transmission Date: 20110219
  Serious: Yes (Other)
  Sender: FDA-Public Use
  Company Number: US-AMGEN-QUU411506

PATIENT
  Sex: Female
  Weight: 113 kg

DRUGS (4)
  1. NPLATE [Suspect]
     Indication: IDIOPATHIC THROMBOCYTOPENIC PURPURA
     Route: 058
     Dates: start: 20081218
  2. CORTICOSTEROIDS [Concomitant]
  3. METFORMIN HCL [Concomitant]
     Dates: start: 20100301
  4. LORAZEPAM [Concomitant]
     Dates: start: 20100401

REACTIONS (1)
  - NEUROPATHY PERIPHERAL [None]
